FAERS Safety Report 10305062 (Version 1)
Quarter: 2014Q3

REPORT INFORMATION
  Report Type: Not Available
  Country: CN (occurrence: CN)
  Receive Date: 20140715
  Receipt Date: 20140715
  Transmission Date: 20150326
  Serious: Yes (Hospitalization, Other)
  Sender: FDA-Public Use
  Company Number: CN-MUNDIPHARMA DS AND PHARMACOVIGILANCE-GBR-2014-0019276

PATIENT
  Age: 77 Year
  Sex: Male
  Weight: 50 kg

DRUGS (3)
  1. NALOXONE [Concomitant]
     Active Substance: NALOXONE
     Dosage: 0.4 MG, UNK
     Route: 040
     Dates: start: 20140304
  2. MS CONTIN [Suspect]
     Active Substance: MORPHINE SULFATE
     Indication: ABDOMINAL PAIN
     Dosage: 30 MG, DAILY
     Route: 048
     Dates: start: 20140304, end: 20140304
  3. MS CONTIN [Suspect]
     Active Substance: MORPHINE SULFATE
     Indication: PAIN

REACTIONS (7)
  - Miosis [Recovered/Resolved]
  - Cerebral atrophy [Unknown]
  - Respiratory acidosis [Unknown]
  - Lethargy [Recovered/Resolved]
  - Loss of consciousness [Recovered/Resolved]
  - Respiratory failure [Unknown]
  - Musculoskeletal stiffness [Recovered/Resolved]

NARRATIVE: CASE EVENT DATE: 20140304
